FAERS Safety Report 14527048 (Version 4)
Quarter: 2018Q4

REPORT INFORMATION
  Report Type: Spontaneous
  Country: FR (occurrence: FR)
  Receive Date: 20180213
  Receipt Date: 20181121
  Transmission Date: 20190204
  Serious: Yes (Death)
  Sender: FDA-Public Use
  Company Number: PHHY2017FR200488

PATIENT

DRUGS (10)
  1. ETOPOSIDE. [Suspect]
     Active Substance: ETOPOSIDE
     Indication: OSTEOSARCOMA
     Dosage: 75 MG/M2, QD (OVER 1 H IN 250-500 ML SALINE SERUM FOR 4 DAYS)
     Route: 042
  2. CARBOPLATIN. [Suspect]
     Active Substance: CARBOPLATIN
     Indication: OSTEOSARCOMA
     Dosage: UNK
     Route: 065
  3. CISPLATIN. [Suspect]
     Active Substance: CISPLATIN
     Indication: OSTEOSARCOMA
     Dosage: 120 MG/M2, QD (OVER 4 H IN 250 ML SALINE SERUM ONCE ON DAY TWO AFTER THE END OF DOXORUBICIN)
     Route: 042
  4. LEUCOVORIN. [Suspect]
     Active Substance: LEUCOVORIN
     Indication: OSTEOSARCOMA
     Dosage: 15 MG, UNK (20H AFTER 15MG MTX INFUSION UP TO AT LEAST 11 DOSES EVERY 6H, OR MTX LEVEL {0.15 MM/L)
     Route: 048
  5. IFOSFAMIDE. [Suspect]
     Active Substance: IFOSFAMIDE
     Indication: OSTEOSARCOMA
     Dosage: 3000 MG/M2, QD (OVER 3 H IN 250-500 ML IN SALINE SERUM FOR 4 DAYS)
     Route: 042
  6. DOXORUBICIN [Suspect]
     Active Substance: DOXORUBICIN
     Indication: OSTEOSARCOMA
     Dosage: 37.5 MG/M2, QD (OVER 6 H IN 250 ML 5% GLUCOSE WAS GIVEN DAILY THE FIRST TWO DAYS)
     Route: 042
  7. MESNA. [Suspect]
     Active Substance: MESNA
     Indication: OSTEOSARCOMA
     Dosage: 3600 MG/M2, QD (CONTINUOUS INFUSION FOR 4 DAYS)
     Route: 041
  8. ZOLEDRONATE [Suspect]
     Active Substance: ZOLEDRONIC ACID
     Indication: OSTEOSARCOMA
     Dosage: 10UG/LITRE, QMO (10 MONTHLY INTRAVENOUS INFUSIONS DURING THE PRE AND POSTOPERATIVE TREATMENT PHASES)
     Route: 042
  9. CYCLOPHOSPHAMIDE. [Suspect]
     Active Substance: CYCLOPHOSPHAMIDE
     Indication: OSTEOSARCOMA
     Dosage: UNK
     Route: 065
  10. METHOTREXATE. [Suspect]
     Active Substance: METHOTREXATE
     Indication: OSTEOSARCOMA
     Dosage: 12000 MG/M2, QD (IN 1L OF 5% DEXTROSE IN WATER WITH 1MEQ/KG OF SODIUM BICARBONATE ADMINISTERED AS 4H
     Route: 041

REACTIONS (1)
  - Toxicity to various agents [Fatal]
